FAERS Safety Report 8861091 (Version 1)
Quarter: 2012Q4

REPORT INFORMATION
  Report Type: 
  Country: US (occurrence: US)
  Receive Date: 20121025
  Receipt Date: 20121025
  Transmission Date: 20130627
  Serious: No
  Sender: FDA-Public Use
  Company Number: US-AMGEN-USASP2012012470

PATIENT
  Age: 70 Year
  Sex: Female
  Weight: 56.24 kg

DRUGS (9)
  1. ENBREL [Suspect]
     Indication: PRODUCT USED FOR UNKNOWN INDICATION
     Dosage: 50 mg, qwk
     Route: 058
  2. PROLIA [Concomitant]
     Dosage: 60 mg, UNK
  3. METHOTREXATE [Concomitant]
     Dosage: 2.5 mg, UNK
  4. FOLIC ACID [Concomitant]
     Dosage: 1 mg, UNK
  5. CENTRUM SILVER                     /01292501/ [Concomitant]
  6. LIPITOR [Concomitant]
     Dosage: 20 mg, UNK
  7. WARFARIN [Concomitant]
     Dosage: 2.5 mg, UNK
  8. VITAMIN D /00107901/ [Concomitant]
  9. CITRACAL + D                       /01438101/ [Concomitant]

REACTIONS (3)
  - Injection site pain [Unknown]
  - Injection site swelling [Unknown]
  - Injection site erythema [Unknown]
